FAERS Safety Report 9862725 (Version 1)
Quarter: 2014Q1

REPORT INFORMATION
  Report Type: Spontaneous
  Country: US (occurrence: US)
  Receive Date: 20140203
  Receipt Date: 20140203
  Transmission Date: 20141002
  Serious: Yes (Death)
  Sender: FDA-Public Use
  Company Number: CHPA2014US001805

PATIENT
  Age: 18 Year
  Sex: Male

DRUGS (11)
  1. DIPHENHYDRAMINE [Suspect]
     Dosage: UNK
     Route: 065
  2. DEXTROMETHORPHAN HYDROBROMIDE [Suspect]
     Dosage: UNK
     Route: 065
  3. ACETAMINOPHEN (PARACETAMOL) [Suspect]
     Dosage: UNK
     Route: 065
  4. HEROIN [Suspect]
     Dosage: UNK
     Route: 065
  5. DIAZEPAM [Suspect]
     Dosage: UNK
     Route: 065
  6. CITALOPRAM [Suspect]
     Dosage: UNK
     Route: 065
  7. PAROXETINE [Suspect]
     Dosage: UNK
     Route: 065
  8. HYDROCODONE [Suspect]
     Dosage: UNK
     Route: 065
  9. DOXEPIN [Suspect]
     Dosage: UNK
     Route: 065
  10. CODEINE [Suspect]
     Dosage: UNK
     Route: 065
  11. ETHANOL [Suspect]
     Dosage: UNK
     Route: 065

REACTIONS (1)
  - Intentional drug misuse [Fatal]
